FAERS Safety Report 6877070-4 (Version None)
Quarter: 2010Q3

REPORT INFORMATION
  Report Type: 
  Country: None (occurrence: None)
  Receive Date: 20100727
  Receipt Date: 20100727
  Transmission Date: 20110219
  Serious: Yes (Hospitalization)
  Sender: FDA-Public Use
  Company Number: None

PATIENT
  Age: 37 Year
  Sex: Female
  Weight: 97.5234 kg

DRUGS (1)
  1. SOLODYN [Suspect]
     Indication: ALOPECIA
     Dosage: 115MG ONCE DAILY PO
     Route: 048
     Dates: start: 20100630, end: 20100723

REACTIONS (5)
  - JOINT SWELLING [None]
  - LIP SWELLING [None]
  - PRURITUS [None]
  - SWELLING FACE [None]
  - URTICARIA [None]
